FAERS Safety Report 15016866 (Version 2)
Quarter: 2019Q1

REPORT INFORMATION
  Report Type: Spontaneous
  Country: US (occurrence: US)
  Receive Date: 20180615
  Receipt Date: 20190319
  Transmission Date: 20190417
  Serious: Yes (Hospitalization, Disabling, Other)
  Sender: FDA-Public Use
  Company Number: GB-ASTRAZENECA-2018SE76205

PATIENT
  Age: 25 Year
  Sex: Male
  Weight: 113.4 kg

DRUGS (24)
  1. ZEGERID OTC [Suspect]
     Active Substance: OMEPRAZOLE\SODIUM BICARBONATE
     Indication: DYSPEPSIA
     Route: 065
     Dates: start: 2007, end: 2011
  2. CLONIDINE. [Concomitant]
     Active Substance: CLONIDINE
  3. GLUCAGON. [Concomitant]
     Active Substance: GLUCAGON
  4. INSULIN GLARGINE [Concomitant]
     Active Substance: INSULIN GLARGINE
  5. SERTRALINE [Concomitant]
     Active Substance: SERTRALINE HYDROCHLORIDE
  6. PRILOSEC [Suspect]
     Active Substance: OMEPRAZOLE MAGNESIUM
     Indication: DYSPEPSIA
     Route: 048
     Dates: start: 2007, end: 2011
  7. ACETAMINOPHEN. [Concomitant]
     Active Substance: ACETAMINOPHEN
     Indication: PAIN
     Dates: start: 2013, end: 2018
  8. PRILOSEC [Suspect]
     Active Substance: OMEPRAZOLE MAGNESIUM
     Indication: DYSPEPSIA
     Dosage: GENERIC
     Route: 048
     Dates: start: 2009, end: 2015
  9. LISINOPRIL. [Concomitant]
     Active Substance: LISINOPRIL
  10. TACROLIMUS. [Concomitant]
     Active Substance: TACROLIMUS
  11. METOPROLOL. [Concomitant]
     Active Substance: METOPROLOL
  12. CELLCEPT [Concomitant]
     Active Substance: MYCOPHENOLATE MOFETIL\MYCOPHENOLATE MOFETIL HYDROCHLORIDE
  13. OXYCODONE-ACETAMINOPHEN [Concomitant]
     Active Substance: ACETAMINOPHEN\OXYCODONE HYDROCHLORIDE
  14. AMLODIPINE [Concomitant]
     Active Substance: AMLODIPINE BESYLATE
  15. METOCLOPRAMIDE. [Concomitant]
     Active Substance: METOCLOPRAMIDE
  16. INSULIN LISPRO [Concomitant]
     Active Substance: INSULIN LISPRO
  17. SIROLIMUS. [Concomitant]
     Active Substance: SIROLIMUS
  18. NIFEDIPINE. [Concomitant]
     Active Substance: NIFEDIPINE
  19. NEXIUM [Suspect]
     Active Substance: ESOMEPRAZOLE MAGNESIUM
     Route: 048
  20. ZEGERID OTC [Suspect]
     Active Substance: OMEPRAZOLE\SODIUM BICARBONATE
     Indication: DYSPEPSIA
     Route: 065
  21. NEXIUM [Suspect]
     Active Substance: ESOMEPRAZOLE MAGNESIUM
     Route: 048
     Dates: start: 2007, end: 2011
  22. ACETAMINOPHEN. [Concomitant]
     Active Substance: ACETAMINOPHEN
     Indication: NASOPHARYNGITIS
     Dates: start: 2013, end: 2018
  23. SIMVASTATIN. [Concomitant]
     Active Substance: SIMVASTATIN
  24. LOSARTAN. [Concomitant]
     Active Substance: LOSARTAN

REACTIONS (4)
  - Renal failure [Recovered/Resolved]
  - Chronic kidney disease [Unknown]
  - End stage renal disease [Unknown]
  - Nephrogenic anaemia [Unknown]

NARRATIVE: CASE EVENT DATE: 2007
